FAERS Safety Report 5986303-8 (Version None)
Quarter: 2008Q4

REPORT INFORMATION
  Report Type: 
  Country: None (occurrence: None)
  Receive Date: 20081203
  Receipt Date: 20081119
  Transmission Date: 20090506
  Serious: Yes (Life-Threatening, Other)
  Sender: FDA-Public Use
  Company Number: 08-063

PATIENT
  Age: 66 Year
  Sex: Female

DRUGS (2)
  1. CEFAZOLIN [Suspect]
     Dosage: 2 GM,ONCE + INTRATHECAL
     Route: 037
  2. OMNIPAQUE 140 [Concomitant]

REACTIONS (5)
  - ANAESTHETIC COMPLICATION [None]
  - CONVULSION [None]
  - DYSARTHRIA [None]
  - INTRACRANIAL HYPOTENSION [None]
  - STATUS EPILEPTICUS [None]
